FAERS Safety Report 9347437 (Version 4)
Quarter: 2013Q3

REPORT INFORMATION
  Report Type: Spontaneous
  Country: US (occurrence: US)
  Receive Date: 20130614
  Receipt Date: 20130823
  Transmission Date: 20140515
  Serious: Yes (Other)
  Sender: FDA-Public Use
  Company Number: US-009507513-1306USA002606

PATIENT
  Age: 64 Year
  Sex: Male
  Weight: 96.6 kg

DRUGS (5)
  1. VICTRELIS [Suspect]
     Indication: HEPATITIS C
     Dosage: 800 MG, TID
     Route: 048
     Dates: start: 20130405
  2. RIBASPHERE [Suspect]
     Indication: HEPATITIS C
     Dosage: 200 MG, UNK
     Dates: start: 20130308
  3. PEGASYS [Suspect]
     Indication: HEPATITIS C
     Dosage: 180 MICROGRAM, QW
     Dates: start: 20130308
  4. DIOVAN [Concomitant]
  5. NEXIUM [Concomitant]
     Route: 048

REACTIONS (4)
  - Blindness unilateral [Recovering/Resolving]
  - Vision blurred [Recovering/Resolving]
  - White blood cell count decreased [Unknown]
  - Eye haemorrhage [Not Recovered/Not Resolved]
